FAERS Safety Report 10370898 (Version 1)
Quarter: 2014Q1

REPORT INFORMATION
  Report Type: Spontaneous
  Country: US (occurrence: None)
  Receive Date: 20140306
  Receipt Date: 20140306
  Transmission Date: 20141002
  Serious: Yes (Hospitalization)
  Sender: FDA-Public Use
  Company Number: 163-21880-13010111

PATIENT
  Age: 65 Year
  Sex: Male
  Weight: 72.58 kg

DRUGS (4)
  1. REVLIMID (LENALIDOMIDE) (10 MILLIGRAM, CAPSULES) [Suspect]
     Indication: PLASMA CELL MYELOMA
     Route: 048
     Dates: start: 20121201
  2. ACYCLOVIR (CAPSULES) [Concomitant]
  3. COREG (CARVEDILOL) (TABLETS) [Concomitant]
  4. SYNTHROID (LEVOTHYROXINE SODIUM) (TABLETS) [Concomitant]

REACTIONS (1)
  - Plasma cell myeloma recurrent [None]
